FAERS Safety Report 5527513-3 (Version None)
Quarter: 2007Q4

REPORT INFORMATION
  Report Type: 
  Country: None (occurrence: None)
  Receive Date: 20071123
  Receipt Date: 20071113
  Transmission Date: 20080405
  Serious: Yes (Other)
  Sender: FDA-Public Use
  Company Number: 2007335263

PATIENT
  Age: 5 Year
  Sex: Female
  Weight: 15.9 kg

DRUGS (1)
  1. BENADRYL [Suspect]
     Indication: RASH
     Dosage: BACK OF HER LEGS, TWICE, TOPICAL
     Route: 061
     Dates: start: 20071111, end: 20071112

REACTIONS (7)
  - AMNESIA [None]
  - BLINDNESS TRANSIENT [None]
  - BLINDNESS UNILATERAL [None]
  - CONFUSIONAL STATE [None]
  - GAIT DISTURBANCE [None]
  - HEART RATE INCREASED [None]
  - PRURITUS [None]
